FAERS Safety Report 20642677 (Version 1)
Quarter: 2022Q1

REPORT INFORMATION
  Report Type: Spontaneous
  Country: US (occurrence: None)
  Receive Date: 20220325
  Receipt Date: 20220325
  Transmission Date: 20220424
  Serious: No
  Sender: FDA-Public Use
  Company Number: None

PATIENT
  Age: 71 Year
  Sex: Female

DRUGS (1)
  1. SOFOSBUVIR AND VELPATASVIR [Suspect]
     Active Substance: SOFOSBUVIR\VELPATASVIR
     Indication: Hepatitis C
     Dosage: 400/100 DAILY ORAL? ?
     Route: 048
     Dates: start: 20220304

REACTIONS (4)
  - Blood pressure increased [None]
  - Blood glucose increased [None]
  - Urinary retention [None]
  - Hydronephrosis [None]

NARRATIVE: CASE EVENT DATE: 20220301
